FAERS Safety Report 15589846 (Version 1)
Quarter: 2018Q4

REPORT INFORMATION
  Report Type: Report from Study
  Country: US (occurrence: US)
  Receive Date: 20181106
  Receipt Date: 20181106
  Transmission Date: 20190205
  Serious: Yes (Other)
  Sender: FDA-Public Use
  Company Number: US-MYLANLABS-2018M1081391

PATIENT

DRUGS (2)
  1. OXYMETHOLONE [Suspect]
     Active Substance: OXYMETHOLONE
     Indication: CONGENITAL DYSKERATOSIS
     Dosage: FOLLOWED BY 2 MG/KG/DAY
     Route: 065
  2. OXYMETHOLONE [Suspect]
     Active Substance: OXYMETHOLONE
     Indication: APLASTIC ANAEMIA
     Dosage: 2 MG/KG, QD
     Route: 065

REACTIONS (3)
  - Splenic peliosis [Unknown]
  - Splenic rupture [Unknown]
  - Epiphyses premature fusion [Unknown]
